FAERS Safety Report 19956004 (Version 2)
Quarter: 2021Q4

REPORT INFORMATION
  Report Type: Spontaneous
  Country: US (occurrence: US)
  Receive Date: 20211014
  Receipt Date: 20211209
  Transmission Date: 20220303
  Serious: No
  Sender: FDA-Public Use
  Company Number: US-MILLICENT HOLDINGS LTD.-MILL20210904

PATIENT
  Age: 65 Year
  Sex: Female
  Weight: 79.450 kg

DRUGS (2)
  1. INTRAROSA [Suspect]
     Active Substance: PRASTERONE
     Indication: Urinary tract infection
     Dosage: UNKNOWN
     Route: 067
     Dates: start: 20201214
  2. INTRAROSA [Suspect]
     Active Substance: PRASTERONE
     Indication: Dyspareunia

REACTIONS (6)
  - Underdose [Unknown]
  - Application site discharge [Unknown]
  - Product physical issue [Unknown]
  - Off label use [Unknown]
  - Product packaging difficult to open [Unknown]
  - Product use complaint [Unknown]
